FAERS Safety Report 4958488-3 (Version None)
Quarter: 2006Q1

REPORT INFORMATION
  Report Type: 
  Country: None (occurrence: None)
  Receive Date: 20060201
  Receipt Date: 20051101
  Transmission Date: 20060701
  Serious: No
  Sender: FDA-Public Use
  Company Number: 2005PV003933

PATIENT
  Age: 63 Year
  Sex: Male
  Weight: 142.8831 kg

DRUGS (15)
  1. BYETTA [Suspect]
     Indication: DIABETES MELLITUS NON-INSULIN-DEPENDENT
     Dosage: 5 MCG;BID;SC
     Route: 058
     Dates: start: 20051030
  2. AMARYL [Concomitant]
  3. NASACORT [Concomitant]
  4. HYDROCHLOROTHIAZIDE [Concomitant]
  5. WELLBUTRIN [Concomitant]
  6. TOPROL-XL [Concomitant]
  7. QUINAPRIL [Concomitant]
  8. PLAVIX [Concomitant]
  9. LIPITOR [Concomitant]
  10. FOLIC ACID [Concomitant]
  11. VITAMIN B-12 [Concomitant]
  12. VITAMIN B6 [Concomitant]
  13. ASPIRIN [Concomitant]
  14. MAGNESIUM [Concomitant]
  15. AVANDIA [Concomitant]

REACTIONS (8)
  - ASTHENIA [None]
  - BLOOD PRESSURE INCREASED [None]
  - DIZZINESS [None]
  - FEELING JITTERY [None]
  - FLUSHING [None]
  - HEADACHE [None]
  - HYPOGLYCAEMIA [None]
  - TINNITUS [None]
